FAERS Safety Report 9661024 (Version 3)
Quarter: 2014Q1

REPORT INFORMATION
  Report Type: Spontaneous
  Country: US (occurrence: US)
  Receive Date: 20131031
  Receipt Date: 20140123
  Transmission Date: 20141002
  Serious: Yes (Hospitalization)
  Sender: FDA-Public Use
  Company Number: US-GLAXOSMITHKLINE-A1047155A

PATIENT
  Sex: Male

DRUGS (3)
  1. VOTRIENT [Suspect]
     Indication: NEOPLASM MALIGNANT
     Route: 065
     Dates: start: 20130927
  2. POTASSIUM CITRATE [Concomitant]
  3. FISH OIL [Concomitant]

REACTIONS (2)
  - Infection [Recovered/Resolved]
  - Central venous catheter removal [Unknown]
